FAERS Safety Report 15116359 (Version 1)
Quarter: 2018Q2

REPORT INFORMATION
  Report Type: Spontaneous
  Country: US (occurrence: US)
  Receive Date: 20180612
  Receipt Date: 20180612
  Transmission Date: 20180711
  Serious: Yes (Hospitalization, Other)
  Sender: FDA-Public Use
  Company Number: None

PATIENT
  Age: 47 Year
  Sex: Female
  Weight: 122.4 kg

DRUGS (7)
  1. PROCHLORPERAZINE. [Concomitant]
     Active Substance: PROCHLORPERAZINE
  2. VENTOLIN [Concomitant]
     Active Substance: ALBUTEROL SULFATE
  3. WELLBUTRIN [Concomitant]
     Active Substance: BUPROPION HYDROCHLORIDE
  4. CAPECITABINE. [Suspect]
     Active Substance: CAPECITABINE
     Indication: BILE DUCT CANCER
     Route: 048
     Dates: start: 20180516, end: 20180612
  5. GABAPENTIN. [Concomitant]
     Active Substance: GABAPENTIN
  6. LORAZEPAM. [Concomitant]
     Active Substance: LORAZEPAM
  7. DOCUSATE [Concomitant]
     Active Substance: DOCUSATE

REACTIONS (2)
  - Abdominal pain [None]
  - Diarrhoea [None]
